FAERS Safety Report 21831398 (Version 4)
Quarter: 2025Q2

REPORT INFORMATION
  Report Type: Spontaneous
  Country: US (occurrence: US)
  Receive Date: 20230106
  Receipt Date: 20250501
  Transmission Date: 20250716
  Serious: No
  Sender: PFIZER
  Company Number: US-PFIZER INC-202201401389

PATIENT
  Age: 59 Year
  Sex: Female
  Weight: 70.31 kg

DRUGS (12)
  1. XELJANZ XR [Suspect]
     Active Substance: TOFACITINIB CITRATE
     Indication: Rheumatoid arthritis
     Dosage: 11 MG, DAILY (AT BEDTIME)
     Route: 048
     Dates: start: 2020
  2. NAPROXEN [Concomitant]
     Active Substance: NAPROXEN
  3. GABAPENTIN [Concomitant]
     Active Substance: GABAPENTIN
  4. MIRTAZAPINE [Concomitant]
     Active Substance: MIRTAZAPINE
     Dosage: 15 MG, 1X/DAY
     Route: 048
  5. TRAZODONE HCL [Concomitant]
     Active Substance: TRAZODONE HYDROCHLORIDE
     Dosage: 100 MG, 1X/DAY
     Route: 048
  6. FOLIC ACID [Concomitant]
     Active Substance: FOLIC ACID
     Dosage: 0.4 MG, 2X/DAY
     Route: 048
  7. DULOXETINE HYDROCHLORIDE [Concomitant]
     Active Substance: DULOXETINE HYDROCHLORIDE
     Dosage: 60 MG, 2X/DAY
     Route: 048
  8. PROBIOTIC ACIDOPHILUS [LACTOBACILLUS ACIDOPHILUS] [Concomitant]
     Dosage: 1 DF (100B CELL CAPSULE), 1X/DAY
     Route: 048
  9. REPATHA [Concomitant]
     Active Substance: EVOLOCUMAB
     Route: 058
  10. LYRICA [Concomitant]
     Active Substance: PREGABALIN
  11. MELOXICAM [Concomitant]
     Active Substance: MELOXICAM
     Indication: Intervertebral disc protrusion
  12. MELOXICAM [Concomitant]
     Active Substance: MELOXICAM
     Indication: Spinal stenosis

REACTIONS (6)
  - Musculoskeletal stiffness [Not Recovered/Not Resolved]
  - Abdominal distension [Not Recovered/Not Resolved]
  - Flatulence [Not Recovered/Not Resolved]
  - Weight increased [Unknown]
  - Cystitis [Not Recovered/Not Resolved]
  - Urinary tract infection [Recovered/Resolved]

NARRATIVE: CASE EVENT DATE: 20211201
